FAERS Safety Report 19764683 (Version 5)
Quarter: 2021Q4

REPORT INFORMATION
  Report Type: Report from Study
  Country: ES (occurrence: ES)
  Receive Date: 20210831
  Receipt Date: 20211228
  Transmission Date: 20220303
  Serious: Yes (Other)
  Sender: FDA-Public Use
  Company Number: ES-SUN PHARMACEUTICAL INDUSTRIES LTD-2021RR-309468

PATIENT
  Age: 77 Year
  Sex: Male
  Weight: 90 kg

DRUGS (7)
  1. SONIDEGIB [Suspect]
     Active Substance: SONIDEGIB
     Indication: Basal cell carcinoma
     Dosage: 200 MILLIGRAM, DAILY
     Route: 048
     Dates: start: 20210514, end: 20210614
  2. METAMIZOL [Concomitant]
     Active Substance: METAMIZOLE SODIUM
     Indication: Pre-existing disease
     Dosage: UNK
     Route: 065
     Dates: start: 20151201
  3. DUTASTERIDE\TAMSULOSIN [Concomitant]
     Active Substance: DUTASTERIDE\TAMSULOSIN
     Indication: Pre-existing disease
     Dosage: 0.5 MILLIGRAM, DAILY
     Route: 048
     Dates: start: 20180711
  4. LATANOPROST [Concomitant]
     Active Substance: LATANOPROST
     Indication: Pre-existing disease
     Dosage: UNK
     Route: 065
     Dates: start: 20180711
  5. INDAPAMIDE\PERINDOPRIL [Concomitant]
     Active Substance: INDAPAMIDE\PERINDOPRIL
     Indication: Pre-existing disease
     Dosage: UNK
     Route: 065
     Dates: start: 20141031
  6. INDAPAMIDE [Concomitant]
     Active Substance: INDAPAMIDE
     Indication: Pre-existing disease
     Dosage: 0.625 MILLIGRAM, DAILY
     Route: 048
     Dates: start: 20141031
  7. TAMSULOSIN HYDROCHLORIDE [Concomitant]
     Active Substance: TAMSULOSIN HYDROCHLORIDE
     Indication: Pre-existing disease
     Dosage: 0.4 MILLIGRAM, DAILY
     Route: 048
     Dates: start: 20180711

REACTIONS (4)
  - Myasthenia gravis [Not Recovered/Not Resolved]
  - Muscle spasms [Recovered/Resolved]
  - Increased appetite [Not Recovered/Not Resolved]
  - Fatigue [Recovered/Resolved]

NARRATIVE: CASE EVENT DATE: 20210615
